FAERS Safety Report 16185632 (Version 1)
Quarter: 2019Q2

REPORT INFORMATION
  Report Type: Spontaneous
  Country: US (occurrence: US)
  Receive Date: 20190411
  Receipt Date: 20190411
  Transmission Date: 20190711
  Serious: Yes (Hospitalization, Other)
  Sender: FDA-Public Use
  Company Number: US-BAYER-2019-072034

PATIENT
  Age: 28 Year
  Sex: Female

DRUGS (1)
  1. DR. SCHOLLS CLEAR AWAY WART REMOVER PLANTAR [Suspect]
     Active Substance: SALICYLIC ACID
     Dosage: 2 DF, UNK
     Route: 061

REACTIONS (7)
  - Pain in extremity [Recovered/Resolved]
  - Musculoskeletal stiffness [Recovered/Resolved]
  - Hypoaesthesia [Recovering/Resolving]
  - Blister [Recovering/Resolving]
  - Oedema peripheral [Recovering/Resolving]
  - Hypersensitivity [Recovering/Resolving]
  - Immobile [Recovered/Resolved]
